APPROVED DRUG PRODUCT: PREDNISOLONE SODIUM PHOSPHATE
Active Ingredient: PREDNISOLONE SODIUM PHOSPHATE
Strength: EQ 15MG BASE/5ML
Dosage Form/Route: SOLUTION;ORAL
Application: A079010 | Product #001
Applicant: PH HEALTH LTD
Approved: May 26, 2009 | RLD: No | RS: No | Type: DISCN